FAERS Safety Report 7352363-5 (Version None)
Quarter: 2011Q1

REPORT INFORMATION
  Report Type: 
  Country: None (occurrence: None)
  Receive Date: 20110309
  Receipt Date: 20110309
  Transmission Date: 20110831
  Serious: Yes (Other)
  Sender: FDA-Public Use
  Company Number: None

PATIENT
  Sex: Female
  Weight: 48.5349 kg

DRUGS (1)
  1. CLARITHROMYCIN [Suspect]
     Indication: EAR INFECTION
     Dosage: 500 MG 2 DAILY PO
     Route: 048
     Dates: start: 20101110, end: 20101113

REACTIONS (5)
  - VERTIGO [None]
  - TINNITUS [None]
  - WEIGHT DECREASED [None]
  - STRESS [None]
  - NAUSEA [None]
